FAERS Safety Report 9845299 (Version 1)
Quarter: 2014Q1

REPORT INFORMATION
  Report Type: Spontaneous
  Country: US (occurrence: US)
  Receive Date: 20140127
  Receipt Date: 20140127
  Transmission Date: 20141002
  Serious: No
  Sender: FDA-Public Use
  Company Number: US-BAUSCH-BL-2013-004250

PATIENT
  Age: 25 Year
  Sex: Male

DRUGS (1)
  1. ZYLET (LOTEPREDNOL ETABONATE 0.5% AND TOBRAMYCIN 0.3% OPHTHALMIC SUSPE [Suspect]
     Indication: CORNEAL INFILTRATES
     Dosage: 1 DROP IN RIGHT EYE, FOUR TIMES PER DAY
     Route: 047
     Dates: start: 201306, end: 201306

REACTIONS (2)
  - Off label use [Recovered/Resolved]
  - Mydriasis [Recovered/Resolved]
